FAERS Safety Report 8523323-3 (Version None)
Quarter: 2012Q3

REPORT INFORMATION
  Report Type: 
  Country: None (occurrence: None)
  Receive Date: 20120720
  Receipt Date: 20120711
  Transmission Date: 20120928
  Serious: Yes (Hospitalization)
  Sender: FDA-Public Use
  Company Number: US-BRISTOL-MYERS SQUIBB COMPANY-16762023

PATIENT
  Age: 42 Year
  Sex: Female

DRUGS (2)
  1. PREDNISONE [Concomitant]
  2. ORENCIA [Suspect]
     Dosage: RESTARTED JUN12 LAST DATE OF INFUSION:   JUN2012
     Route: 042
     Dates: start: 20110101

REACTIONS (2)
  - SPINAL DISORDER [None]
  - WEIGHT INCREASED [None]
